FAERS Safety Report 7949516 (Version 4)
Quarter: 2013Q2

REPORT INFORMATION
  Report Type: Spontaneous
  Country: US (occurrence: US)
  Receive Date: 20110518
  Receipt Date: 20130405
  Transmission Date: 20140414
  Serious: Yes (Hospitalization, Other)
  Sender: FDA-Public Use
  Company Number: US-BAYER-2011-041993

PATIENT
  Age: 18 Year
  Sex: Female
  Weight: 75 kg

DRUGS (3)
  1. YAZ [Suspect]
     Indication: CONTRACEPTION
     Dosage: UNK
     Route: 048
     Dates: start: 200901, end: 200906
  2. NEXIUM [Concomitant]
     Dosage: 40 MG, QD
     Route: 048
  3. VALTREX [Concomitant]
     Dosage: 1000 MG, UNK
     Route: 048

REACTIONS (13)
  - Deep vein thrombosis [Recovered/Resolved]
  - Pulmonary embolism [Recovered/Resolved]
  - Pulmonary infarction [None]
  - Emotional distress [None]
  - Pain [Recovered/Resolved]
  - Anxiety [None]
  - General physical health deterioration [Recovered/Resolved]
  - Haemorrhage [Recovered/Resolved]
  - Dyspnoea [Recovered/Resolved]
  - Dizziness [Recovered/Resolved]
  - Dizziness [Recovered/Resolved]
  - Chest pain [Recovered/Resolved]
  - Haemoptysis [Recovered/Resolved]
